FAERS Safety Report 9881759 (Version 2)
Quarter: 2014Q1

REPORT INFORMATION
  Report Type: Spontaneous
  Country: US (occurrence: US)
  Receive Date: 20140207
  Receipt Date: 20140312
  Transmission Date: 20141002
  Serious: Yes (Other)
  Sender: FDA-Public Use
  Company Number: US-009507513-1402USA001957

PATIENT
  Sex: Female

DRUGS (7)
  1. VYTORIN [Suspect]
     Dosage: 1/2 TABLET PO QD
     Route: 048
  2. PRINZIDE [Suspect]
     Dosage: 1 TABLET DAILY
     Route: 048
  3. PRILOSEC [Suspect]
     Dosage: 40 MG, QD: EXTENDED RELEASE
     Route: 048
  4. DETROL LA [Concomitant]
     Dosage: 4 MG, QD EXTENDED RELEASE
     Route: 048
  5. NORVASC [Concomitant]
     Dosage: 5 MG, QD
     Route: 048
  6. VITAMINS (UNSPECIFIED) [Concomitant]
     Dosage: 1 TABLET DAILY
     Route: 048
  7. ALEVE [Concomitant]
     Dosage: 220 MG, BID PRN
     Route: 048

REACTIONS (10)
  - Neurostimulator implantation [Unknown]
  - Appendicectomy [Unknown]
  - Head titubation [Unknown]
  - Gastrooesophageal reflux disease [Unknown]
  - Essential hypertension [Unknown]
  - Hypercholesterolaemia [Unknown]
  - Hypoxia [Unknown]
  - Impaired fasting glucose [Unknown]
  - Osteoporosis postmenopausal [Unknown]
  - Cerebrovascular accident [Unknown]
